APPROVED DRUG PRODUCT: MUPIROCIN
Active Ingredient: MUPIROCIN
Strength: 2%
Dosage Form/Route: OINTMENT;TOPICAL
Application: A065123 | Product #001 | TE Code: AB
Applicant: PADAGIS ISRAEL PHARMACEUTICALS LTD
Approved: Nov 7, 2003 | RLD: No | RS: Yes | Type: RX